FAERS Safety Report 9200967 (Version 1)
Quarter: 2013Q1

REPORT INFORMATION
  Report Type: Spontaneous
  Country: US (occurrence: None)
  Receive Date: 20130327
  Receipt Date: 20130327
  Transmission Date: 20140127
  Serious: Yes (Hospitalization)
  Sender: FDA-Public Use
  Company Number: FK201300909

PATIENT
  Age: 15 Year
  Sex: Female

DRUGS (8)
  1. AZITHROMYCIN (MANUFACTURER UNKNOWN) (AZITHROMYCIN) (AZITHROMYCIN) [Suspect]
  2. MESALAMINE [Suspect]
  3. GANCICLOVIR (GANCICLOVIR) [Concomitant]
  4. LABETALOL (LABETALOL) [Concomitant]
  5. PREDNISONE (PREDNISONE) [Concomitant]
  6. AMLODIPINE (AMLODIPINE) [Concomitant]
  7. 6-MERCAPTOPURINE [Concomitant]
  8. CLONIDINE (CLONIDINE) [Concomitant]

REACTIONS (11)
  - Renal failure acute [None]
  - Renal failure acute [None]
  - Cough [None]
  - Pyrexia [None]
  - Tachycardia [None]
  - Hypertension [None]
  - Renal tubular necrosis [None]
  - Focal segmental glomerulosclerosis [None]
  - Tubulointerstitial nephritis [None]
  - Respiratory failure [None]
  - Haemodialysis [None]
